FAERS Safety Report 24763488 (Version 1)
Quarter: 2024Q4

REPORT INFORMATION
  Report Type: Report from Study
  Country: US (occurrence: US)
  Receive Date: 20241223
  Receipt Date: 20241223
  Transmission Date: 20250115
  Serious: Yes (Other)
  Sender: JOHNSON AND JOHNSON
  Company Number: US-JNJFOC-20241255852

PATIENT
  Age: 76 Year
  Sex: Female

DRUGS (4)
  1. SPRAVATO [Suspect]
     Active Substance: ESKETAMINE
     Indication: Depression
     Dosage: ^28 MG, 3 TOTAL DOSES^
     Route: 045
     Dates: start: 20241021, end: 20241029
  2. SPRAVATO [Suspect]
     Active Substance: ESKETAMINE
     Dosage: ^84 MG, 1 TOTAL DOSE^
     Route: 045
     Dates: start: 20241031, end: 20241031
  3. SPRAVATO [Suspect]
     Active Substance: ESKETAMINE
     Dosage: ^56 MG, 5 TOTAL DOSES^
     Route: 045
     Dates: start: 20241105, end: 20241206
  4. SPRAVATO [Suspect]
     Active Substance: ESKETAMINE
     Dosage: ^56 MG, 1 TOTAL DOSE^, RECENT DOSE
     Route: 045
     Dates: start: 20241213, end: 20241213

REACTIONS (2)
  - Blood pressure systolic decreased [Recovered/Resolved]
  - Dissociation [Recovered/Resolved]

NARRATIVE: CASE EVENT DATE: 20241213
